FAERS Safety Report 4609354-4 (Version None)
Quarter: 2005Q1

REPORT INFORMATION
  Report Type: 
  Country: None (occurrence: None)
  Receive Date: 20050314
  Receipt Date: 20050301
  Transmission Date: 20050727
  Serious: Yes (Other)
  Sender: FDA-Public Use
  Company Number: 2005042040

PATIENT

DRUGS (2)
  1. SULPERAZON (SULBACTAM, CEFOPERAZONE) [Suspect]
     Indication: INFECTION
     Dosage: INTRAVENOUS
     Route: 042
  2. OMEPRAZOLE [Concomitant]

REACTIONS (1)
  - ELECTROCARDIOGRAM QT PROLONGED [None]
